FAERS Safety Report 20391282 (Version 1)
Quarter: 2022Q1

REPORT INFORMATION
  Report Type: Spontaneous
  Country: US (occurrence: None)
  Receive Date: 20220127
  Receipt Date: 20220127
  Transmission Date: 20220423
  Serious: No
  Sender: FDA-Public Use
  Company Number: None

PATIENT

DRUGS (1)
  1. AZOPT [Suspect]
     Active Substance: BRINZOLAMIDE

REACTIONS (1)
  - Dyspnoea [None]
